FAERS Safety Report 6271868-1 (Version None)
Quarter: 2009Q3

REPORT INFORMATION
  Report Type: 
  Country: None (occurrence: None)
  Receive Date: 20090717
  Receipt Date: 20090716
  Transmission Date: 20100115
  Serious: Yes (Death, Hospitalization)
  Sender: FDA-Public Use
  Company Number: PHHY2009AU28861

PATIENT
  Sex: Male

DRUGS (3)
  1. EXELON [Suspect]
     Indication: DELIRIUM
     Dosage: PATCH 5 FOR 72 HOURS
     Route: 062
  2. ANTIPSYCHOTICS [Concomitant]
  3. ANTIBIOTICS [Concomitant]

REACTIONS (1)
  - SEPSIS [None]
